FAERS Safety Report 13262322 (Version 2)
Quarter: 2017Q1

REPORT INFORMATION
  Report Type: Spontaneous
  Country: US (occurrence: US)
  Receive Date: 20170223
  Receipt Date: 20170314
  Transmission Date: 20170428
  Serious: Yes (Other)
  Sender: FDA-Public Use
  Company Number: US-BRISTOL-MYERS SQUIBB COMPANY-BMS-2017-013324

PATIENT
  Age: 54 Year
  Sex: Male

DRUGS (1)
  1. YERVOY [Suspect]
     Active Substance: IPILIMUMAB
     Indication: MALIGNANT MELANOMA
     Dosage: 10 MG/KG, Q3WK
     Route: 042
     Dates: start: 20161219, end: 20170110

REACTIONS (4)
  - Thyroiditis [Unknown]
  - Liver function test increased [Unknown]
  - Prescribed overdose [Unknown]
  - Rash [Unknown]

NARRATIVE: CASE EVENT DATE: 20170214
